FAERS Safety Report 19606937 (Version 1)
Quarter: 2021Q3

REPORT INFORMATION
  Report Type: Spontaneous
  Country: JP (occurrence: JP)
  Receive Date: 20210725
  Receipt Date: 20210725
  Transmission Date: 20211014
  Serious: Yes (Disabling)
  Sender: FDA-Public Use
  Company Number: JP-009507513-2102JPN000682J

PATIENT
  Age: 8 Decade
  Sex: Male

DRUGS (1)
  1. KEYTRUDA [Suspect]
     Active Substance: PEMBROLIZUMAB
     Indication: BLADDER TRANSITIONAL CELL CARCINOMA
     Dosage: 200 MILLIGRAM, Q3W
     Route: 041
     Dates: start: 202002, end: 202008

REACTIONS (3)
  - Paronychia [Unknown]
  - Onychomadesis [Not Recovered/Not Resolved]
  - Skin erosion [Unknown]

NARRATIVE: CASE EVENT DATE: 2020
